FAERS Safety Report 5694130-4 (Version None)
Quarter: 2008Q2

REPORT INFORMATION
  Report Type: 
  Country: None (occurrence: None)
  Receive Date: 20080402
  Receipt Date: 20080324
  Transmission Date: 20081010
  Serious: Yes (Other)
  Sender: FDA-Public Use
  Company Number: 2008007275

PATIENT
  Age: 48 Year
  Sex: Male
  Weight: 86.2 kg

DRUGS (1)
  1. BENADRYL [Suspect]
     Indication: NASOPHARYNGITIS
     Dosage: 2 TABLETS PER DAY (2 IN 1 D), ORAL
     Route: 048
     Dates: start: 20080320

REACTIONS (3)
  - BLOOD PRESSURE INCREASED [None]
  - FEELING ABNORMAL [None]
  - HOT FLUSH [None]
